FAERS Safety Report 25167460 (Version 2)
Quarter: 2025Q2

REPORT INFORMATION
  Report Type: Spontaneous
  Country: US (occurrence: US)
  Receive Date: 20250407
  Receipt Date: 20250410
  Transmission Date: 20250717
  Serious: Yes (Death, Life-Threatening, Hospitalization, Other)
  Sender: PFIZER
  Company Number: US-MLMSERVICE-20250326-PI458220-00175-1

PATIENT
  Age: 48 Year
  Sex: Female

DRUGS (6)
  1. HEPARIN SODIUM [Suspect]
     Active Substance: HEPARIN SODIUM
     Indication: Splenic infarction
     Route: 041
  2. HEPARIN SODIUM [Suspect]
     Active Substance: HEPARIN SODIUM
     Indication: Anticoagulant therapy
  3. TRIAMCINOLONE [Concomitant]
     Active Substance: TRIAMCINOLONE
     Indication: Acute cutaneous lupus erythematosus
  4. TRIAMCINOLONE [Concomitant]
     Active Substance: TRIAMCINOLONE
     Indication: Histiocytic necrotising lymphadenitis
  5. PREDNISONE [Concomitant]
     Active Substance: PREDNISONE
     Indication: Acute cutaneous lupus erythematosus
     Dosage: 1 MG/KG, 1X/DAY
     Route: 048
  6. PREDNISONE [Concomitant]
     Active Substance: PREDNISONE
     Indication: Histiocytic necrotising lymphadenitis

REACTIONS (1)
  - Retroperitoneal haemorrhage [Fatal]
